FAERS Safety Report 5194254-4 (Version None)
Quarter: 2006Q4

REPORT INFORMATION
  Report Type: 
  Country: None (occurrence: None)
  Receive Date: 20061228
  Receipt Date: 20060927
  Transmission Date: 20070319
  Serious: Yes (Hospitalization)
  Sender: FDA-Public Use
  Company Number: US-BOEHRINGER INGELHEIM PHARMACEUTICALS, INC.-2006-BP-11403BP

PATIENT
  Age: 62 Year
  Sex: Male

DRUGS (17)
  1. FLOMAX [Suspect]
     Indication: BENIGN PROSTATIC HYPERPLASIA
     Route: 048
     Dates: start: 20050101, end: 20060922
  2. INSULIN [Concomitant]
  3. NIASPAN [Concomitant]
  4. POTASSIUM ACETATE [Concomitant]
  5. ZOLOFT [Concomitant]
  6. TRAZODONE HCL [Concomitant]
  7. PREDNISONE TAB [Concomitant]
  8. ATENOLOL [Concomitant]
  9. AVODART [Concomitant]
  10. MOBIC [Concomitant]
  11. GLYBURIDE [Concomitant]
  12. PREVACID [Concomitant]
  13. PLAVIX [Concomitant]
  14. ASPIRIN [Concomitant]
  15. ACTOS [Concomitant]
  16. AMBIEN [Concomitant]
  17. COMBIVENT [Concomitant]

REACTIONS (4)
  - AGEUSIA [None]
  - DIZZINESS [None]
  - ERECTILE DYSFUNCTION [None]
  - PANCREATITIS ACUTE [None]
